FAERS Safety Report 9493576 (Version 2)
Quarter: 2013Q3

REPORT INFORMATION
  Report Type: Spontaneous
  Country: US (occurrence: US)
  Receive Date: 20130902
  Receipt Date: 20130903
  Transmission Date: 20140515
  Serious: No
  Sender: FDA-Public Use
  Company Number: US-PFIZER INC-2013250127

PATIENT
  Sex: 0

DRUGS (1)
  1. LYRICA [Suspect]
     Indication: EPILEPSY
     Dosage: UNK
     Dates: start: 2005, end: 2005

REACTIONS (1)
  - Photopsia [Unknown]
